FAERS Safety Report 5257370-4 (Version None)
Quarter: 2007Q1

REPORT INFORMATION
  Report Type: 
  Country: None (occurrence: None)
  Receive Date: 20070307
  Receipt Date: 20070302
  Transmission Date: 20070707
  Serious: Yes (Other)
  Sender: FDA-Public Use
  Company Number: DE-MERCK-0703DEU00007

PATIENT

DRUGS (2)
  1. ZOCOR [Suspect]
     Route: 048
  2. VYTORIN [Suspect]
     Route: 048

REACTIONS (1)
  - BLADDER CANCER [None]
